FAERS Safety Report 15327803 (Version 1)
Quarter: 2018Q3

REPORT INFORMATION
  Report Type: Spontaneous
  Country: US (occurrence: US)
  Receive Date: 20180828
  Receipt Date: 20180828
  Transmission Date: 20181010
  Serious: Yes (Death, Other)
  Sender: FDA-Public Use
  Company Number: US-ROCHE-1990980

PATIENT
  Age: 56 Year
  Sex: Female

DRUGS (1)
  1. PEG?INTERFERON ALFA 2A [Suspect]
     Active Substance: PEGINTERFERON ALFA-2A
     Indication: ERDHEIM-CHESTER DISEASE
     Route: 065

REACTIONS (2)
  - Hepatic encephalopathy [Fatal]
  - Depression [Unknown]
